FAERS Safety Report 8352255-9 (Version None)
Quarter: 2012Q2

REPORT INFORMATION
  Report Type: 
  Country: None (occurrence: None)
  Receive Date: 20120511
  Receipt Date: 20120502
  Transmission Date: 20120825
  Serious: Yes (Other)
  Sender: FDA-Public Use
  Company Number: AU-JNJFOC-20110700795

PATIENT
  Sex: Female

DRUGS (6)
  1. STELARA [Suspect]
     Indication: PSORIASIS
     Route: 058
     Dates: start: 20100324
  2. STELARA [Suspect]
     Route: 058
     Dates: start: 20100216
  3. METHOTREXATE [Concomitant]
     Route: 065
  4. STELARA [Suspect]
     Route: 058
  5. STELARA [Suspect]
     Route: 058
     Dates: start: 20100604
  6. STELARA [Suspect]
     Route: 058
     Dates: start: 20101104

REACTIONS (3)
  - ARTHRALGIA [None]
  - INCORRECT DOSE ADMINISTERED [None]
  - EXOSTOSIS [None]
